FAERS Safety Report 5390864-X (Version None)
Quarter: 2007Q3

REPORT INFORMATION
  Report Type: 
  Country: None (occurrence: None)
  Receive Date: 20070716
  Receipt Date: 20070705
  Transmission Date: 20080115
  Serious: Yes (Life-Threatening, Hospitalization)
  Sender: FDA-Public Use
  Company Number: GXKR2007CH05855

PATIENT
  Age: 33 Year
  Sex: Female

DRUGS (6)
  1. ECOFENAC (NGX)(DICLOFENAC) UNKNOWN [Suspect]
     Indication: SUICIDE ATTEMPT
     Dosage: ONCE/SINGLE,
     Dates: start: 20061117, end: 20061117
  2. ZYRTEC [Suspect]
     Indication: SUICIDE ATTEMPT
     Dosage: ONCE/SINGLE,
     Dates: start: 20061117, end: 20061117
  3. ACETAMINOPHEN [Suspect]
     Indication: SUICIDE ATTEMPT
     Dosage: ONCE/SINGLE,
     Dates: start: 20061117, end: 20061117
  4. PREDNISONE TAB [Suspect]
     Indication: SUICIDE ATTEMPT
     Dosage: ONCE/SINGLE,
     Dates: start: 20061117, end: 20061117
  5. NEURONTIN [Suspect]
     Indication: SUICIDE ATTEMPT
     Dosage: ONCE/SINGLE,
     Dates: start: 20061117, end: 20061117
  6. CITALOPRAM HYDROBROMIDE [Suspect]
     Indication: SUICIDE ATTEMPT
     Dosage: ONCE/SINGLE, URETHRAL
     Route: 066
     Dates: start: 20061117, end: 20061117

REACTIONS (5)
  - COMA [None]
  - HYPOXIA [None]
  - INTENTIONAL OVERDOSE [None]
  - INTUBATION [None]
  - SUICIDE ATTEMPT [None]
